FAERS Safety Report 5190975-8 (Version None)
Quarter: 2006Q4

REPORT INFORMATION
  Report Type: 
  Country: None (occurrence: None)
  Receive Date: 20061223
  Receipt Date: 20050114
  Transmission Date: 20070319
  Serious: Yes (Hospitalization)
  Sender: FDA-Public Use
  Company Number: PHHO2005US01043

PATIENT
  Age: 79 Year
  Sex: Male
  Weight: 92.3 kg

DRUGS (7)
  1. LOTREL [Suspect]
     Indication: HYPERTENSION
     Dosage: LEVEL 1
     Route: 048
     Dates: start: 20040625
  2. LOTREL [Suspect]
     Dosage: UNK, LEVEL 3
     Route: 048
     Dates: end: 20060909
  3. ASPIRIN [Concomitant]
  4. LORTAB [Concomitant]
     Indication: PAIN
  5. MOBIC [Concomitant]
  6. NORVASC [Concomitant]
  7. LASIX [Concomitant]
     Indication: HYPERTENSION
     Route: 048
     Dates: start: 20060403

REACTIONS (28)
  - AORTIC VALVE REPLACEMENT [None]
  - AORTIC VALVE STENOSIS [None]
  - ARTERIAL STENOSIS [None]
  - ARTHRALGIA [None]
  - ASTHENIA [None]
  - BACTERAEMIA [None]
  - CARDIAC FAILURE CONGESTIVE [None]
  - CELLULITIS [None]
  - CHEST PAIN [None]
  - CHILLS [None]
  - CONCOMITANT DISEASE PROGRESSION [None]
  - CORONARY ARTERY DISEASE [None]
  - COUGH [None]
  - DYSPNOEA [None]
  - ERYTHEMA [None]
  - GROIN ABSCESS [None]
  - HYPERHIDROSIS [None]
  - INFLUENZA LIKE ILLNESS [None]
  - MUSCULOSKELETAL CHEST PAIN [None]
  - OEDEMA [None]
  - PYREXIA [None]
  - RENAL FAILURE [None]
  - RENAL TUBULAR NECROSIS [None]
  - SINUS TACHYCARDIA [None]
  - STENT PLACEMENT [None]
  - STERNOTOMY [None]
  - VASCULAR BYPASS GRAFT [None]
  - VENTRICULAR HYPERTROPHY [None]
